FAERS Safety Report 9753812 (Version 1)
Quarter: 2013Q4

REPORT INFORMATION
  Report Type: Spontaneous
  Country: US (occurrence: US)
  Receive Date: 20131213
  Receipt Date: 20131213
  Transmission Date: 20140711
  Serious: No
  Sender: FDA-Public Use
  Company Number: US-GILEAD-2010-0027575

PATIENT
  Age: 66 Year
  Sex: Female
  Weight: 77.11 kg

DRUGS (15)
  1. LETAIRIS [Suspect]
     Indication: PULMONARY ARTERIAL HYPERTENSION
     Route: 048
     Dates: start: 20090311
  2. LISINOPRIL [Concomitant]
  3. TOPROL XL [Concomitant]
  4. AMLODIPINE [Concomitant]
  5. DIOVAN [Concomitant]
  6. HYDRALAZINE [Concomitant]
  7. ALLOPURINOL [Concomitant]
  8. LASIX [Concomitant]
  9. COUMADIN [Concomitant]
  10. NEXIUM [Concomitant]
  11. MAGNESIUM OXIDE [Concomitant]
  12. VITAMIN C [Concomitant]
  13. VITAMIN E [Concomitant]
  14. ZYRTEC [Concomitant]
  15. POTASSIUM CHLORIDE [Concomitant]

REACTIONS (1)
  - Night sweats [Unknown]
